FAERS Safety Report 9477204 (Version 1)
Quarter: 2013Q3

REPORT INFORMATION
  Report Type: Report from Study
  Country: DE (occurrence: DE)
  Receive Date: 20130826
  Receipt Date: 20130826
  Transmission Date: 20140515
  Serious: Yes (Life-Threatening, Hospitalization, Other)
  Sender: FDA-Public Use
  Company Number: DE-ABBOTT-13P-062-1137091-00

PATIENT
  Age: 48 Year
  Sex: Male
  Weight: 78 kg

DRUGS (2)
  1. HUMIRA [Suspect]
     Indication: CROHN^S DISEASE
     Dates: start: 20130219
  2. PREDNISOLON [Concomitant]
     Indication: PRODUCT USED FOR UNKNOWN INDICATION

REACTIONS (22)
  - Intracranial venous sinus thrombosis [Recovered/Resolved with Sequelae]
  - Crohn^s disease [Not Recovered/Not Resolved]
  - Cerebral haemorrhage [Recovered/Resolved with Sequelae]
  - Brain oedema [Recovered/Resolved with Sequelae]
  - Wound infection [Recovered/Resolved]
  - Encephalitis [Recovered/Resolved]
  - Cerebrospinal fistula [Recovered/Resolved]
  - Epilepsy [Unknown]
  - Hemiparesis [Not Recovered/Not Resolved]
  - Hyponatraemia [Recovered/Resolved]
  - Large intestine perforation [Recovered/Resolved]
  - Peritonitis [Recovered/Resolved]
  - Abscess intestinal [Recovered/Resolved]
  - Pneumonia [Recovered/Resolved]
  - Tracheostomy infection [Recovered/Resolved]
  - Pleural effusion [Recovered/Resolved]
  - Haemorrhagic anaemia [Recovered/Resolved]
  - Thrombocytopenia [Recovered/Resolved]
  - Coagulopathy [Recovered/Resolved]
  - Hydrocephalus [Recovered/Resolved with Sequelae]
  - Colitis ulcerative [Unknown]
  - Dysarthria [Not Recovered/Not Resolved]
